FAERS Safety Report 22225083 (Version 1)
Quarter: 2023Q2

REPORT INFORMATION
  Report Type: Spontaneous
  Country: US (occurrence: US)
  Receive Date: 20230418
  Receipt Date: 20230418
  Transmission Date: 20230721
  Serious: No
  Sender: FDA-Public Use
  Company Number: US-MYLANLABS-2023M1036266

PATIENT
  Sex: Female
  Weight: 86 kg

DRUGS (1)
  1. SEMGLEE (INSULIN GLARGINE-YFGN) [Suspect]
     Active Substance: INSULIN GLARGINE-YFGN
     Indication: Type 2 diabetes mellitus
     Dosage: 56 INTERNATIONAL UNIT, QD
     Route: 058
     Dates: start: 20230320

REACTIONS (3)
  - Injection site atrophy [Unknown]
  - Blood glucose increased [Unknown]
  - Drug ineffective [Unknown]
